FAERS Safety Report 9617089 (Version 1)
Quarter: 2013Q4

REPORT INFORMATION
  Report Type: Not Available
  Country: US (occurrence: US)
  Receive Date: 20131011
  Receipt Date: 20131011
  Transmission Date: 20140711
  Serious: No
  Sender: FDA-Public Use
  Company Number: US-TARO-2012P1060110

PATIENT
  Age: 4 Year
  Sex: Female
  Weight: 20.41 kg

DRUGS (3)
  1. LORATADINE SYRUP (LORATADINE ORAL SOLUTION USP) 5MG/5ML [Suspect]
     Indication: RHINORRHOEA
     Route: 048
     Dates: start: 20120922, end: 20120922
  2. LORATADINE SYRUP (LORATADINE ORAL SOLUTION USP) 5MG/5ML [Suspect]
     Indication: EYE PRURITUS
     Route: 048
     Dates: start: 20120922, end: 20120922
  3. LORATADINE SYRUP (LORATADINE ORAL SOLUTION USP) 5MG/5ML [Suspect]
     Route: 048
     Dates: start: 20120922, end: 20120922

REACTIONS (1)
  - Vomiting [Recovered/Resolved]
